FAERS Safety Report 10090503 (Version 2)
Quarter: 2014Q2

REPORT INFORMATION
  Report Type: Spontaneous
  Country: GB (occurrence: GB)
  Receive Date: 20140421
  Receipt Date: 20140428
  Transmission Date: 20141212
  Serious: Yes (Other)
  Sender: FDA-Public Use
  Company Number: GB-009507513-1404GBR008608

PATIENT
  Sex: Female

DRUGS (1)
  1. SINEMET 10MG/100MG TABLETS [Suspect]
     Indication: TREMOR
     Route: 048

REACTIONS (1)
  - Carpal tunnel decompression [Unknown]
